FAERS Safety Report 9244884 (Version 1)
Quarter: 2013Q1

REPORT INFORMATION
  Report Type: Spontaneous
  Country: US (occurrence: None)
  Receive Date: 20121123
  Receipt Date: 20121123
  Transmission Date: 20140127
  Serious: No
  Sender: FDA-Public Use
  Company Number: 360871

PATIENT
  Sex: Male

DRUGS (3)
  1. LEVEMIR [Suspect]
     Indication: DIABETES MELLITUS
     Route: 058
  2. VICTOZA (LIRAGLUTIDE) SOLUTION FOR INJECTION [Suspect]
     Indication: PRODUCT USED FOR UNKNOWN INDICATION
     Route: 058
     Dates: start: 20120922
  3. ACTOS (PIOGLITAZONE HYDROCHLORIDE) [Suspect]
     Indication: PRODUCT USED FOR UNKNOWN INDICATION

REACTIONS (5)
  - Hyperhidrosis [None]
  - Decreased appetite [None]
  - Nausea [None]
  - Vomiting [None]
  - Diarrhoea [None]
